FAERS Safety Report 13523822 (Version 1)
Quarter: 2017Q2

REPORT INFORMATION
  Report Type: Spontaneous
  Country: US (occurrence: US)
  Receive Date: 20170508
  Receipt Date: 20170508
  Transmission Date: 20170830
  Serious: No
  Sender: FDA-Public Use
  Company Number: US-VIFOR (INTERNATIONAL) INC.-VIT-2017-03999

PATIENT
  Sex: Male

DRUGS (10)
  1. FLUDROCORTISONE [Concomitant]
     Active Substance: FLUDROCORTISONE
  2. DAILYVITE [Concomitant]
  3. RANEXA [Concomitant]
     Active Substance: RANOLAZINE
  4. BISOPROLOL [Concomitant]
     Active Substance: BISOPROLOL
  5. VELTASSA [Suspect]
     Active Substance: PATIROMER
     Indication: HYPERKALAEMIA
     Route: 048
     Dates: start: 20161112
  6. MIDODRINE [Concomitant]
     Active Substance: MIDODRINE
  7. ALPRAZOLAM. [Concomitant]
     Active Substance: ALPRAZOLAM
  8. ATORVASTATIN [Concomitant]
     Active Substance: ATORVASTATIN
  9. EFFIENT [Concomitant]
     Active Substance: PRASUGREL HYDROCHLORIDE
  10. LEVOTHYROXINE. [Concomitant]
     Active Substance: LEVOTHYROXINE

REACTIONS (1)
  - Drug dose omission [Unknown]

NARRATIVE: CASE EVENT DATE: 2017
